FAERS Safety Report 6355723-4 (Version None)
Quarter: 2009Q3

REPORT INFORMATION
  Report Type: 
  Country: None (occurrence: None)
  Receive Date: 20090910
  Receipt Date: 20090825
  Transmission Date: 20100115
  Serious: Yes (Death, Hospitalization)
  Sender: FDA-Public Use
  Company Number: 2009AL003461

PATIENT
  Age: 77 Year
  Sex: Female

DRUGS (27)
  1. DIGOXIN [Suspect]
     Dosage: 0.125MG, PO; 625MCG,QOD, PO
     Route: 048
     Dates: start: 20020123
  2. DIGOXIN [Suspect]
     Dosage: 0.125MG, PO; 625MCG,QOD, PO
     Route: 048
     Dates: start: 20070714
  3. ALDACTONE [Concomitant]
  4. CORDARONE [Concomitant]
  5. POTASSIUM CHLORIDE [Concomitant]
  6. PEPCID [Concomitant]
  7. LIPITOR [Concomitant]
  8. LASIX [Concomitant]
  9. ZOLIPREM [Concomitant]
  10. TRAMADOL HCL [Concomitant]
  11. COREG [Concomitant]
  12. METOCLOPRAMIDE [Concomitant]
  13. PREVACID [Concomitant]
  14. ZOFRAN [Concomitant]
  15. MEGESTROL ACETATE [Concomitant]
  16. COUMADIN [Concomitant]
  17. PACERONE [Concomitant]
  18. GLYCOLAX [Concomitant]
  19. ALPRAZOLAM [Concomitant]
  20. NITROGLYCERIN [Concomitant]
  21. DILTIAZ ER [Concomitant]
  22. PAXIL [Concomitant]
  23. MECLIZINE [Concomitant]
  24. DIOVAN [Concomitant]
  25. OXYCOD/APAP [Concomitant]
  26. PROMETHAZINE [Concomitant]
  27. PRIMIDONE [Concomitant]

REACTIONS (3)
  - ECONOMIC PROBLEM [None]
  - MULTIPLE INJURIES [None]
  - PAIN [None]
